FAERS Safety Report 13811589 (Version 1)
Quarter: 2017Q3

REPORT INFORMATION
  Report Type: Spontaneous
  Country: US (occurrence: US)
  Receive Date: 20170728
  Receipt Date: 20170728
  Transmission Date: 20171127
  Serious: No
  Sender: FDA-Public Use
  Company Number: US-ROCHE-797767

PATIENT
  Age: 62 Year
  Sex: Male

DRUGS (1)
  1. BONIVA [Suspect]
     Active Substance: IBANDRONATE SODIUM
     Indication: OSTEOPOROSIS
     Dosage: 5 INJECTIONS ADMINISTERED
     Route: 042

REACTIONS (3)
  - Cellulitis [Recovered/Resolved]
  - Incorrect drug administration rate [Unknown]
  - Phlebitis [Recovered/Resolved]

NARRATIVE: CASE EVENT DATE: 20110721
